FAERS Safety Report 8107189-1 (Version None)
Quarter: 2011Q4

REPORT INFORMATION
  Report Type: 
  Country: None (occurrence: None)
  Receive Date: 20111227
  Receipt Date: 20110907
  Transmission Date: 20120403
  Serious: No
  Sender: FDA-Public Use
  Company Number: PHEH2011US03988

PATIENT
  Age: 43 Year
  Sex: Female
  Weight: 85.3 kg

DRUGS (1)
  1. GILENYA [Suspect]
     Dates: start: 20101209

REACTIONS (2)
  - DYSGRAPHIA [None]
  - TREMOR [None]
